FAERS Safety Report 18959098 (Version 2)
Quarter: 2021Q2

REPORT INFORMATION
  Report Type: Spontaneous
  Country: US (occurrence: US)
  Receive Date: 20210302
  Receipt Date: 20210524
  Transmission Date: 20210717
  Serious: Yes (Hospitalization)
  Sender: FDA-Public Use
  Company Number: US-DECIPHERA PHARMACEUTICALS LLC-2021US000154

PATIENT
  Age: 72 Year
  Sex: Male

DRUGS (1)
  1. QINLOCK [Suspect]
     Active Substance: RIPRETINIB
     Indication: GASTROINTESTINAL STROMAL TUMOUR
     Dosage: 150 MILLIGRAM, QD
     Route: 048
     Dates: start: 20200622

REACTIONS (5)
  - Lung neoplasm malignant [Unknown]
  - Periarthritis [Unknown]
  - Rotator cuff syndrome [Unknown]
  - Tumour excision [Unknown]
  - Tendonitis [Unknown]

NARRATIVE: CASE EVENT DATE: 20210121
